FAERS Safety Report 9449877 (Version 1)
Quarter: 2013Q3

REPORT INFORMATION
  Report Type: Spontaneous
  Country: GB (occurrence: GB)
  Receive Date: 20130809
  Receipt Date: 20130809
  Transmission Date: 20140515
  Serious: Yes (Other)
  Sender: FDA-Public Use
  Company Number: GB-JNJFOC-20130800862

PATIENT
  Age: 46 Year
  Sex: Male

DRUGS (8)
  1. STELARA [Suspect]
     Indication: PSORIASIS
     Route: 058
     Dates: start: 20130731
  2. STELARA [Suspect]
     Indication: PSORIASIS
     Route: 058
     Dates: start: 20130513
  3. STELARA [Suspect]
     Indication: PSORIASIS
     Route: 058
     Dates: start: 20130416
  4. DEPAKOTE [Concomitant]
     Route: 065
  5. RAMIPRIL [Concomitant]
     Route: 065
  6. ATARAX [Concomitant]
     Dosage: 25 MG ONCE A DAY AND 10 MG TWICE A DAY
     Route: 065
  7. ATARAX [Concomitant]
     Dosage: 25 MG ONCE A DAY AND 10 MG TWICE A DAY
     Route: 065
  8. QUETIAPINE [Concomitant]
     Dosage: 50 MG IN AM AND 100 MG NOCTE
     Route: 065

REACTIONS (3)
  - Splenomegaly [Not Recovered/Not Resolved]
  - Hepatic steatosis [Not Recovered/Not Resolved]
  - Type 2 diabetes mellitus [Not Recovered/Not Resolved]
